FAERS Safety Report 5461012-2 (Version None)
Quarter: 2007Q3

REPORT INFORMATION
  Report Type: 
  Country: None (occurrence: None)
  Receive Date: 20070822
  Receipt Date: 20061204
  Transmission Date: 20080115
  Serious: Yes (Other)
  Sender: FDA-Public Use
  Company Number: 2006149379

PATIENT
  Sex: Female

DRUGS (1)
  1. NORVASC [Suspect]
     Dosage: 5 MG (5 MG, 1 IN 24 HR), ORAL
     Route: 048
     Dates: start: 20061101, end: 20061101

REACTIONS (1)
  - PALPITATIONS [None]
